FAERS Safety Report 14535739 (Version 1)
Quarter: 2018Q1

REPORT INFORMATION
  Report Type: Spontaneous
  Country: DK (occurrence: DK)
  Receive Date: 20180215
  Receipt Date: 20180215
  Transmission Date: 20180509
  Serious: Yes (Life-Threatening)
  Sender: FDA-Public Use
  Company Number: PHHY2018DK025388

PATIENT
  Age: 75 Year
  Sex: Male
  Weight: 81 kg

DRUGS (5)
  1. COLECALCIFEROL [Concomitant]
     Active Substance: CHOLECALCIFEROL
     Indication: VITAMIN D DEFICIENCY
     Dosage: 70 UG, QD
     Route: 048
     Dates: start: 20161219
  2. HEXAMYCIN [Suspect]
     Active Substance: GENTAMICIN
     Indication: ANTIBIOTIC PROPHYLAXIS
     Dosage: 240 MG, UNK
     Route: 042
  3. PANTOPRAZOL STADA [Concomitant]
     Indication: GASTROOESOPHAGEAL REFLUX DISEASE
     Dosage: 20 MG, QD
     Route: 048
     Dates: start: 20161220
  4. NATRIUMBIKARBONAT [Concomitant]
     Indication: RENAL FAILURE
     Dosage: 1500 MG, QD
     Route: 048
     Dates: start: 20161218
  5. PENTREXYL [Concomitant]
     Active Substance: AMPICILLIN
     Indication: ANTIBIOTIC PROPHYLAXIS
     Route: 065
     Dates: start: 20171211, end: 20171212

REACTIONS (3)
  - Hypotension [Recovered/Resolved]
  - Anaphylactoid shock [Recovered/Resolved]
  - Bronchospasm [Recovered/Resolved]

NARRATIVE: CASE EVENT DATE: 20171211
